FAERS Safety Report 7132005-4 (Version None)
Quarter: 2010Q4

REPORT INFORMATION
  Report Type: 
  Country: None (occurrence: None)
  Receive Date: 20101130
  Receipt Date: 20101130
  Transmission Date: 20110411
  Serious: Yes (Other)
  Sender: FDA-Public Use
  Company Number: None

PATIENT
  Age: 31 Year
  Sex: Male
  Weight: 89.3586 kg

DRUGS (2)
  1. COLISTIMETHATE [Suspect]
     Indication: ACINETOBACTER INFECTION
     Dosage: 235MG Q12H IV
     Route: 042
     Dates: start: 20101019, end: 20101022
  2. ROCURONIUM BROMIDE [Suspect]
     Indication: SURGERY
     Dosage: 30MG ONCE IV
     Route: 042
     Dates: start: 20101022, end: 20101022

REACTIONS (2)
  - CEREBRAL DISORDER [None]
  - UNRESPONSIVE TO STIMULI [None]
